FAERS Safety Report 10606749 (Version 1)
Quarter: 2014Q4

REPORT INFORMATION
  Report Type: Spontaneous
  Country: US (occurrence: None)
  Receive Date: 20141124
  Receipt Date: 20141124
  Transmission Date: 20150529
  Serious: No
  Sender: FDA-Public Use
  Company Number: None

PATIENT
  Age: 17 Year
  Sex: Male

DRUGS (1)
  1. MINOCYCLINE [Suspect]
     Active Substance: MINOCYCLINE\MINOCYCLINE HYDROCHLORIDE
     Indication: ACNE
     Dates: start: 20120130, end: 20130816

REACTIONS (2)
  - Hepatic enzyme increased [None]
  - Alanine aminotransferase increased [None]

NARRATIVE: CASE EVENT DATE: 20140807
